FAERS Safety Report 8607170 (Version 3)
Quarter: 2013Q4

REPORT INFORMATION
  Report Type: Spontaneous
  Country: US (occurrence: US)
  Receive Date: 20120611
  Receipt Date: 20131122
  Transmission Date: 20140711
  Serious: Yes (Disabling, Other)
  Sender: FDA-Public Use
  Company Number: US-ASTRAZENECA-2012SE34505

PATIENT
  Age: 68 Year
  Sex: Female

DRUGS (18)
  1. NEXIUM [Suspect]
     Indication: BARRETT^S OESOPHAGUS
     Route: 048
     Dates: start: 20051227
  2. NEXIUM [Suspect]
     Indication: GASTROOESOPHAGEAL REFLUX DISEASE
     Route: 048
     Dates: start: 20051227
  3. NEXIUM [Suspect]
     Indication: BARRETT^S OESOPHAGUS
     Dosage: DAILY
     Route: 048
     Dates: start: 200604, end: 200905
  4. NEXIUM [Suspect]
     Indication: GASTROOESOPHAGEAL REFLUX DISEASE
     Dosage: DAILY
     Route: 048
     Dates: start: 200604, end: 200905
  5. PRILOSEC [Suspect]
     Indication: BARRETT^S OESOPHAGUS
     Route: 048
     Dates: start: 200604
  6. PRILOSEC [Suspect]
     Indication: GASTROOESOPHAGEAL REFLUX DISEASE
     Route: 048
     Dates: start: 200604
  7. PRILOSEC [Suspect]
     Indication: BARRETT^S OESOPHAGUS
     Route: 048
  8. PRILOSEC [Suspect]
     Indication: GASTROOESOPHAGEAL REFLUX DISEASE
     Route: 048
  9. PRILOSEC [Suspect]
     Indication: BARRETT^S OESOPHAGUS
     Route: 048
     Dates: start: 20090616
  10. PRILOSEC [Suspect]
     Indication: GASTROOESOPHAGEAL REFLUX DISEASE
     Route: 048
     Dates: start: 20090616
  11. PRILOSEC OTC [Suspect]
     Route: 048
  12. PREMARIN [Concomitant]
     Indication: HORMONE REPLACEMENT THERAPY
     Dosage: TAKE ONE TABLET
     Dates: start: 20060125
  13. ASPIRIN [Concomitant]
  14. PROZAC [Concomitant]
  15. HYDROCODON-ACETAMINOPH [Concomitant]
     Dosage: TAKE ONE TAB ONCE
     Dates: start: 20060116
  16. PROMETHAZINE [Concomitant]
     Dates: start: 20060125
  17. SALSALATE [Concomitant]
     Dates: start: 20060125
  18. PEPTOBISMOL [Concomitant]

REACTIONS (16)
  - Spinal compression fracture [Unknown]
  - Spinal fracture [Unknown]
  - Hip fracture [Unknown]
  - Rib fracture [Unknown]
  - Fall [Unknown]
  - Pubis fracture [Unknown]
  - Osteoporosis [Unknown]
  - Bone disorder [Unknown]
  - Sinus disorder [Unknown]
  - Gastroenteritis viral [Unknown]
  - Cataract [Unknown]
  - Arthritis [Unknown]
  - Intervertebral disc protrusion [Unknown]
  - Lumbar spinal stenosis [Unknown]
  - Intervertebral disc degeneration [Unknown]
  - Depression [Unknown]
